FAERS Safety Report 19284971 (Version 1)
Quarter: 2021Q2

REPORT INFORMATION
  Report Type: Spontaneous
  Country: US (occurrence: US)
  Receive Date: 20210521
  Receipt Date: 20210521
  Transmission Date: 20210717
  Serious: No
  Sender: FDA-Public Use
  Company Number: US-RADIUS HEALTH INC.-2020US001649

PATIENT
  Age: 77 Year
  Sex: Female

DRUGS (1)
  1. TYMLOS [Suspect]
     Active Substance: ABALOPARATIDE
     Indication: OSTEOPOROSIS POSTMENOPAUSAL
     Dosage: 80 MCG
     Dates: start: 20200327

REACTIONS (8)
  - Intentional device use issue [Recovering/Resolving]
  - Abdominal pain upper [Unknown]
  - Expired product administered [Recovering/Resolving]
  - Nausea [Unknown]
  - Injection site pain [Unknown]
  - Lethargy [Unknown]
  - Product storage error [Unknown]
  - Dizziness [Unknown]

NARRATIVE: CASE EVENT DATE: 20200327
